FAERS Safety Report 22524399 (Version 1)
Quarter: 2023Q2

REPORT INFORMATION
  Report Type: Other
  Country: HR (occurrence: HR)
  Receive Date: 20230606
  Receipt Date: 20230606
  Transmission Date: 20230722
  Serious: Yes (Life-Threatening)
  Sender: FDA-Public Use
  Company Number: HR-BoehringerIngelheim-2023-BI-240966

PATIENT
  Age: 53 Year
  Sex: Male

DRUGS (1)
  1. ALTEPLASE [Suspect]
     Active Substance: ALTEPLASE
     Indication: Cerebrovascular accident
     Route: 065

REACTIONS (4)
  - Pulmonary embolism [Recovering/Resolving]
  - Embolism arterial [Recovering/Resolving]
  - Respiratory arrest [Recovering/Resolving]
  - Cardiac arrest [Recovering/Resolving]

NARRATIVE: CASE EVENT DATE: 20230101
